FAERS Safety Report 13764257 (Version 1)
Quarter: 2017Q3

REPORT INFORMATION
  Report Type: Spontaneous
  Country: FR (occurrence: FR)
  Receive Date: 20170718
  Receipt Date: 20170718
  Transmission Date: 20171127
  Serious: Yes (Other)
  Sender: FDA-Public Use
  Company Number: FR-PFIZER INC-2017309947

PATIENT
  Age: 88 Year
  Sex: Female

DRUGS (7)
  1. GARDENAL [Suspect]
     Active Substance: PHENOBARBITAL
     Dosage: 100 MG, 1X/DAY
     Route: 048
  2. PREVISCAN [Suspect]
     Active Substance: FLUINDIONE
     Indication: ARRHYTHMIA
     Dosage: 10 MG, DAILY (SINCE CHILDHOOD)
     Route: 048
     Dates: start: 20110128
  3. AMIODARONE HCL [Suspect]
     Active Substance: AMIODARONE HYDROCHLORIDE
     Indication: ARRHYTHMIA
  4. PREVISCAN [Suspect]
     Active Substance: FLUINDIONE
     Indication: ATRIAL FIBRILLATION
  5. AMIODARONE HCL [Suspect]
     Active Substance: AMIODARONE HYDROCHLORIDE
     Indication: ATRIAL FIBRILLATION
     Dosage: 100 MG, DAILY
     Route: 048
     Dates: start: 20110128
  6. GARDENAL [Suspect]
     Active Substance: PHENOBARBITAL
     Indication: EPILEPSY
     Dosage: 100 MG, DAILY (100 MG AT BED TIME)
     Route: 048
  7. GARDENAL [Suspect]
     Active Substance: PHENOBARBITAL
     Dosage: 50 MG,DAILY (ONE TABLET PER EVENING)
     Route: 048

REACTIONS (6)
  - Underdose [Unknown]
  - Epilepsy [Recovered/Resolved]
  - Tongue biting [Unknown]
  - Seizure [Unknown]
  - Tongue haemorrhage [Unknown]
  - Drug dispensing error [Unknown]

NARRATIVE: CASE EVENT DATE: 20170615
